FAERS Safety Report 21145834 (Version 1)
Quarter: 2022Q3

REPORT INFORMATION
  Report Type: Spontaneous
  Country: CA (occurrence: CA)
  Receive Date: 20220729
  Receipt Date: 20220729
  Transmission Date: 20221027
  Serious: Yes (Other)
  Sender: FDA-Public Use
  Company Number: CA-TEVA-2022-CA-2057909

PATIENT
  Age: 33 Year
  Sex: Male
  Weight: 64 kg

DRUGS (1)
  1. CLINDAMYCIN HYDROCHLORIDE [Suspect]
     Active Substance: CLINDAMYCIN HYDROCHLORIDE
     Indication: Prophylaxis
     Dosage: 4 DOSAGE FORMS DAILY; THERAPY DURATION : 8 DAYS
     Route: 048

REACTIONS (6)
  - Abdominal pain upper [Recovered/Resolved]
  - Clostridium difficile infection [Recovered/Resolved]
  - Haematochezia [Recovered/Resolved]
  - Irritable bowel syndrome [Recovered/Resolved]
  - Proctalgia [Recovered/Resolved]
  - Heart rate increased [Recovered/Resolved]
